FAERS Safety Report 15744901 (Version 1)
Quarter: 2018Q4

REPORT INFORMATION
  Report Type: Spontaneous
  Country: SE (occurrence: SE)
  Receive Date: 20181220
  Receipt Date: 20181220
  Transmission Date: 20190205
  Serious: Yes (Other)
  Sender: FDA-Public Use
  Company Number: SE-009507513-1812SWE008766

PATIENT
  Age: 75 Year
  Sex: Female

DRUGS (6)
  1. KALCIPOS D [Concomitant]
     Active Substance: CALCIUM CARBONATE\CHOLECALCIFEROL
  2. INOLAXOL [Concomitant]
     Active Substance: HERBALS\KARAYA GUM
  3. ENTOCORT [Concomitant]
     Active Substance: BUDESONIDE
  4. ALENDRONATE SODIUM. [Suspect]
     Active Substance: ALENDRONATE SODIUM
     Indication: OSTEOPOROSIS
     Dosage: 70 MILLIGRAM, QW
     Route: 048
     Dates: start: 20181203, end: 20181204
  5. ESCITALOPRAM [Concomitant]
     Active Substance: ESCITALOPRAM OXALATE
  6. DIMOR [Concomitant]
     Active Substance: LOPERAMIDE
     Dosage: INTERVAL UNIT: AS NECESSARY

REACTIONS (2)
  - Blood pressure decreased [Not Recovered/Not Resolved]
  - Syncope [Not Recovered/Not Resolved]

NARRATIVE: CASE EVENT DATE: 20181203
